FAERS Safety Report 6577699-7 (Version None)
Quarter: 2010Q1

REPORT INFORMATION
  Report Type: 
  Country: None (occurrence: None)
  Receive Date: 20100211
  Receipt Date: 20100208
  Transmission Date: 20100710
  Serious: Yes (Death)
  Sender: FDA-Public Use
  Company Number: PHHY2010CA07125

PATIENT
  Sex: Female

DRUGS (6)
  1. EXELON [Suspect]
     Indication: DEMENTIA ALZHEIMER'S TYPE
     Dosage: 5 MG
     Route: 062
     Dates: start: 20091103
  2. EXELON [Suspect]
     Dosage: 10 MG
     Route: 062
     Dates: start: 20091103
  3. FOSAMAX [Concomitant]
     Dosage: 70 MG ONCE IN A WEEK
  4. INDERAL [Concomitant]
     Dosage: 80 MG
  5. CALCIUM [Concomitant]
  6. PAROXETINE HCL [Concomitant]
     Dosage: 10 MG

REACTIONS (1)
  - DEATH [None]
